FAERS Safety Report 13673888 (Version 1)
Quarter: 2017Q2

REPORT INFORMATION
  Report Type: Spontaneous
  Country: US (occurrence: US)
  Receive Date: 20170621
  Receipt Date: 20170621
  Transmission Date: 20170830
  Serious: Yes (Other)
  Sender: FDA-Public Use
  Company Number: US-PFIZER INC-2017264643

PATIENT
  Age: 59 Year
  Sex: Female
  Weight: 51 kg

DRUGS (6)
  1. TRAZODONE [Concomitant]
     Active Substance: TRAZODONE HYDROCHLORIDE
     Indication: SLEEP DISORDER
     Dosage: 150 MG, UNK
     Route: 048
     Dates: start: 20170501
  2. ALPRAZOLAM. [Concomitant]
     Active Substance: ALPRAZOLAM
     Indication: ANXIETY
     Dosage: 1.25 MG, 1X/DAY
     Route: 048
     Dates: start: 20170515
  3. ONDANSETRON [Concomitant]
     Active Substance: ONDANSETRON
     Indication: PROPHYLAXIS OF NAUSEA AND VOMITING
     Dosage: 4 MG, UNK
     Route: 060
     Dates: start: 20170501
  4. LETROZOLE. [Concomitant]
     Active Substance: LETROZOLE
     Indication: SUPPLEMENTATION THERAPY
     Dosage: 2.5 MG, DAILY
     Route: 048
     Dates: start: 20170502
  5. ONDANSETRON [Concomitant]
     Active Substance: ONDANSETRON
     Indication: APPETITE DISORDER
  6. IBRANCE [Suspect]
     Active Substance: PALBOCICLIB
     Indication: BREAST CANCER STAGE IV
     Dosage: 100 MG, 1X/DAY
     Route: 048
     Dates: start: 20170502

REACTIONS (4)
  - Malaise [Recovering/Resolving]
  - Feeling abnormal [Unknown]
  - Intra-abdominal fluid collection [Unknown]
  - Haematemesis [Unknown]
